FAERS Safety Report 10251389 (Version 1)
Quarter: 2014Q2

REPORT INFORMATION
  Report Type: Spontaneous
  Country: GB (occurrence: GB)
  Receive Date: 20140622
  Receipt Date: 20140622
  Transmission Date: 20141212
  Serious: Yes (Death)
  Sender: FDA-Public Use
  Company Number: GB-JNJFOC-20140612954

PATIENT
  Age: 34 Year
  Sex: Male

DRUGS (2)
  1. IMODIUM INSTANTS [Suspect]
     Route: 065
  2. IMODIUM INSTANTS [Suspect]
     Indication: DIARRHOEA
     Route: 065

REACTIONS (1)
  - Anaphylactic shock [Fatal]
